FAERS Safety Report 4556524-X (Version None)
Quarter: 2005Q1

REPORT INFORMATION
  Report Type: 
  Country: None (occurrence: None)
  Receive Date: 20050114
  Receipt Date: 20050105
  Transmission Date: 20050727
  Serious: Yes (Other)
  Sender: FDA-Public Use
  Company Number: 2004-12-1219

PATIENT
  Sex: Male

DRUGS (1)
  1. VIRAFERONPEG [Suspect]
     Indication: HEPATITIS C
     Dosage: SUBCUTANEOUS
     Route: 058
     Dates: start: 20041001, end: 20041201

REACTIONS (9)
  - CHEST PAIN [None]
  - CONDITION AGGRAVATED [None]
  - ERYTHEMA [None]
  - HEPATITIS C [None]
  - LOSS OF CONSCIOUSNESS [None]
  - MALAISE [None]
  - PALPITATIONS [None]
  - SYNCOPE [None]
  - TRANSAMINASES INCREASED [None]
